FAERS Safety Report 10521096 (Version 3)
Quarter: 2015Q2

REPORT INFORMATION
  Report Type: Report from Study
  Country: US (occurrence: US)
  Receive Date: 20141016
  Receipt Date: 20150504
  Transmission Date: 20150821
  Serious: Yes (Hospitalization)
  Sender: FDA-Public Use
  Company Number: US-BIOGENIDEC-2014BI105216

PATIENT
  Age: 62 Year
  Sex: Female

DRUGS (9)
  1. AVONEX [Suspect]
     Active Substance: INTERFERON BETA-1A
     Indication: RELAPSING-REMITTING MULTIPLE SCLEROSIS
     Route: 030
     Dates: start: 19970901
  2. GABAPENTIN. [Concomitant]
     Active Substance: GABAPENTIN
  3. NASONEX [Concomitant]
     Active Substance: MOMETASONE FUROATE
  4. EVENING PRIMROSE [Concomitant]
  5. CALCIUM D [Concomitant]
     Active Substance: CALCIUM\VITAMIN D
  6. PROVIGIL [Concomitant]
     Active Substance: MODAFINIL
  7. PREMPRO [Concomitant]
     Active Substance: ESTROGENS, CONJUGATED\MEDROXYPROGESTERONE ACETATE
  8. AVONEX [Suspect]
     Active Substance: INTERFERON BETA-1A
     Indication: RELAPSING-REMITTING MULTIPLE SCLEROSIS
     Route: 030
     Dates: start: 20090224
  9. ASPIRIN ADULT LOW STRENGTH [Concomitant]
     Active Substance: ASPIRIN

REACTIONS (7)
  - Musculoskeletal pain [Not Recovered/Not Resolved]
  - Burning sensation [Recovered/Resolved]
  - Pain in extremity [Not Recovered/Not Resolved]
  - Hot flush [Not Recovered/Not Resolved]
  - Musculoskeletal disorder [Not Recovered/Not Resolved]
  - Multiple sclerosis [Recovered/Resolved]
  - Breast cancer [Unknown]

NARRATIVE: CASE EVENT DATE: 201001
